FAERS Safety Report 7909159-2 (Version None)
Quarter: 2011Q4

REPORT INFORMATION
  Report Type: 
  Country: None (occurrence: None)
  Receive Date: 20111111
  Receipt Date: 20110314
  Transmission Date: 20120403
  Serious: No
  Sender: FDA-Public Use
  Company Number: US-GLAXOSMITHKLINE-A0918034A

PATIENT
  Sex: Male

DRUGS (1)
  1. COREG [Suspect]
     Route: 065

REACTIONS (2)
  - DIZZINESS [None]
  - RASH [None]
